FAERS Safety Report 4985774-3 (Version None)
Quarter: 2006Q2

REPORT INFORMATION
  Report Type: 
  Country: None (occurrence: None)
  Receive Date: 20060428
  Receipt Date: 20060417
  Transmission Date: 20061013
  Serious: Yes (Other)
  Sender: FDA-Public Use
  Company Number: FR-BRISTOL-MYERS SQUIBB COMPANY-13348974

PATIENT
  Age: 18 Year
  Sex: Male

DRUGS (6)
  1. CISPLATIN [Suspect]
     Indication: TESTICULAR GERM CELL CANCER
  2. BLEOMYCIN SULFATE [Suspect]
     Indication: TESTICULAR GERM CELL CANCER
  3. ETOPOSIDE [Suspect]
     Indication: TESTICULAR GERM CELL CANCER
  4. THIOPENTAL SODIUM [Concomitant]
     Indication: ANAESTHESIA
  5. SUFENTANIL CITRATE [Concomitant]
     Indication: ANAESTHESIA
  6. VECURONIUM BROMIDE [Concomitant]
     Indication: MUSCLE RELAXANT THERAPY

REACTIONS (1)
  - BRACHIAL PLEXUS INJURY [None]
